FAERS Safety Report 21568704 (Version 2)
Quarter: 2022Q4

REPORT INFORMATION
  Report Type: Spontaneous
  Country: JP (occurrence: JP)
  Receive Date: 20221108
  Receipt Date: 20221125
  Transmission Date: 20230113
  Serious: Yes (Other)
  Sender: FDA-Public Use
  Company Number: JP-002147023-NVSJ2022JP100477

PATIENT
  Age: 87 Year
  Sex: Female

DRUGS (1)
  1. EXFORGE [Suspect]
     Active Substance: AMLODIPINE BESYLATE\VALSARTAN
     Indication: Hypertension
     Dosage: 1DF:VALSARTAN 80MG, AMLODIPINE BESILATE 6.93MG
     Route: 048

REACTIONS (2)
  - Gingival hypertrophy [Unknown]
  - Gingival swelling [Unknown]

NARRATIVE: CASE EVENT DATE: 20221019
